FAERS Safety Report 7148539-2 (Version None)
Quarter: 2010Q4

REPORT INFORMATION
  Report Type: 
  Country: None (occurrence: None)
  Receive Date: 20101209
  Receipt Date: 20101203
  Transmission Date: 20110411
  Serious: Yes (Other)
  Sender: FDA-Public Use
  Company Number: US-BRISTOL-MYERS SQUIBB COMPANY-15426133

PATIENT
  Age: 73 Year
  Sex: Female

DRUGS (12)
  1. DOXORUBICIN HCL [Suspect]
     Indication: BREAST CANCER
  2. CYCLOPHOSPHAMIDE [Suspect]
     Indication: BREAST CANCER
  3. LEVOTHYROXINE SODIUM [Concomitant]
  4. AMLODIPINE BESYLATE+BENAZEPRIL HCL [Concomitant]
  5. CALCIUM [Concomitant]
  6. FISH OIL [Concomitant]
  7. VITAMIN B COMPLEX [Concomitant]
  8. CHOLECALCIFEROL [Concomitant]
  9. VITAMIN E [Concomitant]
  10. FILGRASTIM [Concomitant]
  11. GRANISETRON HCL [Concomitant]
  12. PROMETHAZINE HCL [Concomitant]

REACTIONS (1)
  - SYSTEMIC LUPUS ERYTHEMATOSUS RASH [None]
